FAERS Safety Report 7772174-6 (Version None)
Quarter: 2011Q3

REPORT INFORMATION
  Report Type: 
  Country: None (occurrence: None)
  Receive Date: 20110922
  Receipt Date: 20100827
  Transmission Date: 20111222
  Serious: No
  Sender: FDA-Public Use
  Company Number: US-ASTRAZENECA-2010SE08758

PATIENT
  Age: 8004 Day
  Sex: Female
  Weight: 79.4 kg

DRUGS (5)
  1. REMERON [Concomitant]
  2. ABILIFY [Concomitant]
  3. SEROQUEL XR [Suspect]
     Route: 048
     Dates: start: 20091019, end: 20100222
  4. SEROQUEL XR [Suspect]
     Indication: BIPOLAR I DISORDER
     Route: 048
  5. ZYPREXA [Concomitant]

REACTIONS (2)
  - MATERNAL EXPOSURE DURING PREGNANCY [None]
  - SYNCOPE [None]
